FAERS Safety Report 8604904 (Version 3)
Quarter: 2013Q4

REPORT INFORMATION
  Report Type: Spontaneous
  Country: US (occurrence: US)
  Receive Date: 20120608
  Receipt Date: 20131129
  Transmission Date: 20140711
  Serious: Yes (Hospitalization, Other)
  Sender: FDA-Public Use
  Company Number: US-ASTRAZENECA-2012SE35065

PATIENT
  Age: 69 Year
  Sex: Female

DRUGS (23)
  1. NEXIUM [Suspect]
     Indication: GASTROOESOPHAGEAL REFLUX DISEASE
     Route: 048
     Dates: start: 20011212
  2. NEXIUM [Suspect]
     Indication: GASTROOESOPHAGEAL REFLUX DISEASE
     Dosage: TWICE A DAY
     Route: 048
     Dates: start: 2004, end: 2013
  3. NEXIUM [Suspect]
     Indication: GASTROOESOPHAGEAL REFLUX DISEASE
     Route: 048
     Dates: start: 20041103
  4. LIPITOR [Concomitant]
     Dates: start: 20010216
  5. LIPITOR [Concomitant]
     Dates: start: 20020105
  6. ASPIRIN [Concomitant]
  7. AMITRIPTYLINE [Concomitant]
     Dates: start: 20010216
  8. AMITRIPTYLINE [Concomitant]
     Route: 048
     Dates: start: 20011212
  9. PRAVASTATIN [Concomitant]
  10. MELOXICAM [Concomitant]
  11. NAPROXEN [Concomitant]
     Dates: start: 20010216
  12. PREMARIN [Concomitant]
     Dates: start: 19991229
  13. PREMARIN [Concomitant]
     Route: 048
     Dates: start: 20011207
  14. ZOLOFT [Concomitant]
     Dates: start: 19991229
  15. BEXTRA [Concomitant]
     Dates: start: 20031125
  16. VIOXX [Concomitant]
     Route: 048
     Dates: start: 20020105
  17. VIOXX [Concomitant]
     Dates: start: 20040102
  18. DIAZEPAM [Concomitant]
     Indication: MUSCLE SPASMS
     Dates: start: 20030923
  19. RELAFEN [Concomitant]
     Dates: start: 20000112
  20. WELLBUTRIN [Concomitant]
     Dates: start: 19991103
  21. PRILOSEC [Concomitant]
     Route: 048
     Dates: start: 20040701
  22. AMOXICILLIN [Concomitant]
     Route: 048
     Dates: start: 20020114
  23. CARISOPRODOL [Concomitant]
     Indication: MUSCLE SPASMS
     Dosage: TAKE ONE TABLET BY MOUTH 4 TIMES DAILY AS NEEEDED
     Route: 048
     Dates: start: 20030311

REACTIONS (6)
  - Diabetes mellitus [Unknown]
  - Upper respiratory tract infection [Unknown]
  - Osteoporosis [Unknown]
  - Multiple fractures [Unknown]
  - Rotator cuff syndrome [Unknown]
  - Bone pain [Unknown]
